FAERS Safety Report 8305858 (Version 6)
Quarter: 2012Q4

REPORT INFORMATION
  Report Type: 
  Country: BR (occurrence: BR)
  Receive Date: 20111221
  Receipt Date: 20121130
  Transmission Date: 20130627
  Serious: Yes (Hospitalization, Other)
  Sender: FDA-Public Use
  Company Number: BR-ROCHE-1023239

PATIENT
  Age: 64 Year
  Sex: Female
  Weight: 75 kg

DRUGS (11)
  1. XOLAIR [Suspect]
     Indication: ASTHMA
     Route: 065
     Dates: start: 20100101
  2. FORASEQ [Suspect]
     Indication: ASTHMA
     Dosage: 12/400 ug
     Route: 065
  3. NASONEX [Concomitant]
  4. FLUMIL (ACETYLCYSTEINE) [Concomitant]
  5. SPIRIVA [Concomitant]
  6. BAMIFIX [Concomitant]
  7. FLUIMUCIL (BRAZIL) [Concomitant]
  8. VYTORIN [Concomitant]
  9. OMEPRAZOL [Concomitant]
  10. PERIDAL [Concomitant]
  11. BUDESONIDE [Concomitant]

REACTIONS (10)
  - Chest pain [Not Recovered/Not Resolved]
  - Asthma [Recovering/Resolving]
  - Fatigue [Not Recovered/Not Resolved]
  - Dyspnoea [Recovering/Resolving]
  - Chronic obstructive pulmonary disease [Unknown]
  - Respiratory tract infection [Unknown]
  - Weight increased [Unknown]
  - Wheezing [Recovering/Resolving]
  - Malaise [Unknown]
  - Abdominal distension [Unknown]
